FAERS Safety Report 13717580 (Version 1)
Quarter: 2017Q3

REPORT INFORMATION
  Report Type: Spontaneous
  Country: US (occurrence: US)
  Receive Date: 20170703
  Receipt Date: 20170703
  Transmission Date: 20171127
  Serious: No
  Sender: FDA-Public Use
  Company Number: None

PATIENT
  Age: 55 Year
  Sex: Female

DRUGS (1)
  1. DUPIXENT [Suspect]
     Active Substance: DUPILUMAB
     Indication: DERMATITIS
     Route: 058
     Dates: start: 20170523

REACTIONS (4)
  - Eyelid margin crusting [None]
  - Nail bed bleeding [None]
  - Nail growth abnormal [None]
  - Eyelid oedema [None]

NARRATIVE: CASE EVENT DATE: 20170601
